FAERS Safety Report 7692075 (Version 4)
Quarter: 2018Q4

REPORT INFORMATION
  Report Type: Spontaneous
  Country: US (occurrence: US)
  Receive Date: 20101204
  Receipt Date: 20181101
  Transmission Date: 20190205
  Serious: Yes (Death, Hospitalization)
  Sender: FDA-Public Use
  Company Number: US-BAYER-201042133NA

PATIENT
  Age: 27 Year
  Sex: Female
  Weight: 97.51 kg

DRUGS (3)
  1. YAZ [Suspect]
     Active Substance: DROSPIRENONE\ETHINYL ESTRADIOL
     Indication: ORAL CONTRACEPTION
     Dosage: 1 DF, QD
     Route: 048
     Dates: start: 20081109, end: 20081129
  2. VICODIN [Concomitant]
     Active Substance: ACETAMINOPHEN\HYDROCODONE BITARTRATE
     Indication: PAIN
     Dosage: UNK UNK, Q4HR
     Route: 048
     Dates: start: 20071210, end: 20081129
  3. LORATADINE. [Concomitant]
     Active Substance: LORATADINE
     Dosage: 10 MG, QD
     Route: 048
     Dates: start: 20071210, end: 20081129

REACTIONS (6)
  - Myocardial infarction [Fatal]
  - Pulmonary embolism [Fatal]
  - Chest pain [Fatal]
  - Dyspnoea [Fatal]
  - Deep vein thrombosis [None]
  - Atelectasis [Fatal]

NARRATIVE: CASE EVENT DATE: 200811
